FAERS Safety Report 13720377 (Version 1)
Quarter: 2017Q3

REPORT INFORMATION
  Report Type: Spontaneous
  Country: US (occurrence: US)
  Receive Date: 20170706
  Receipt Date: 20170706
  Transmission Date: 20171127
  Serious: Yes (Other)
  Sender: FDA-Public Use
  Company Number: US-ABBVIE-17K-163-2026753-00

PATIENT
  Sex: Male
  Weight: 63.56 kg

DRUGS (2)
  1. HUMIRA [Suspect]
     Active Substance: ADALIMUMAB
     Indication: CROHN^S DISEASE
     Route: 058
     Dates: start: 2016, end: 201705
  2. HUMIRA [Suspect]
     Active Substance: ADALIMUMAB
     Route: 058
     Dates: start: 201706

REACTIONS (6)
  - Small intestinal obstruction [Recovering/Resolving]
  - Gastrointestinal inflammation [Recovering/Resolving]
  - Injection site pain [Not Recovered/Not Resolved]
  - Device issue [Unknown]
  - Gastrointestinal wall thickening [Recovering/Resolving]
  - Incorrect dose administered [Recovered/Resolved]

NARRATIVE: CASE EVENT DATE: 2016
